FAERS Safety Report 4972167-8 (Version None)
Quarter: 2006Q2

REPORT INFORMATION
  Report Type: 
  Country: None (occurrence: None)
  Receive Date: 20060413
  Receipt Date: 20060410
  Transmission Date: 20061013
  Serious: Yes (Death)
  Sender: FDA-Public Use
  Company Number: PHEH2006US04677

PATIENT
  Age: 30 Year
  Sex: Female
  Weight: 111.11 kg

DRUGS (3)
  1. EFFEXOR XR [Concomitant]
  2. TOPAMAX [Concomitant]
  3. TRILEPTAL [Suspect]
     Indication: EPILEPSY
     Dosage: 900MG QAM+1200MG QHS
     Route: 048
     Dates: start: 20050420

REACTIONS (1)
  - SUDDEN UNEXPLAINED DEATH IN EPILEPSY [None]
